FAERS Safety Report 8166953-3 (Version None)
Quarter: 2012Q1

REPORT INFORMATION
  Report Type: 
  Country: None (occurrence: None)
  Receive Date: 20120227
  Receipt Date: 20120221
  Transmission Date: 20120608
  Serious: Yes (Death, Hospitalization)
  Sender: FDA-Public Use
  Company Number: JP-ASTELLAS-2011JP009649

PATIENT
  Sex: Male

DRUGS (15)
  1. RECALBON [Concomitant]
     Indication: OSTEOPOROSIS
     Dosage: 50 MG, UID/QD
     Route: 048
     Dates: start: 20111012, end: 20111109
  2. RHEUMATREX [Suspect]
     Indication: RHEUMATOID ARTHRITIS
     Dosage: 3 MG, BID
     Route: 048
     Dates: start: 20040412, end: 20051101
  3. PREDNISOLONE [Concomitant]
     Dosage: 2.25 MG, BID
     Route: 048
     Dates: start: 20080811, end: 20111109
  4. AZULFIDINE [Concomitant]
     Indication: RHEUMATOID ARTHRITIS
     Dosage: 500 MG, UID/QD
     Route: 048
     Dates: start: 20040412, end: 20070820
  5. PREDNISOLONE [Concomitant]
     Dosage: 2 MG, BID
     Route: 048
     Dates: start: 20050607, end: 20080204
  6. MELOXICAM [Concomitant]
     Indication: RHEUMATOID ARTHRITIS
     Dosage: 10 MG, UID/QD
     Route: 048
     Dates: start: 20110706, end: 20111109
  7. REBAMIPIDE [Concomitant]
     Indication: RHEUMATOID ARTHRITIS
     Dosage: 50 MG, BID
     Route: 048
     Dates: start: 20110706, end: 20111109
  8. RHEUMATREX [Suspect]
     Dosage: 2 MG, BID
     Route: 048
     Dates: start: 20051101, end: 20111109
  9. PREDNISOLONE [Concomitant]
     Indication: RHEUMATOID ARTHRITIS
     Dosage: 2.5 MG, BID
     Route: 048
     Dates: start: 20040412, end: 20050607
  10. PROGRAF [Suspect]
     Indication: RHEUMATOID ARTHRITIS
     Dosage: 1 MG, UID/QD
     Route: 048
     Dates: start: 20060424, end: 20111109
  11. ALLOPURINOL [Concomitant]
     Indication: GOUT
     Dosage: 100 MG, UID/QD
     Route: 048
     Dates: start: 20040412, end: 20111109
  12. DIOVAN [Concomitant]
     Indication: HYPERTENSION
     Dosage: 160 MG, UID/QD
     Route: 048
     Dates: start: 20060904, end: 20111109
  13. AZULFIDINE [Concomitant]
     Dosage: 250 MG, UID/QD
     Route: 048
     Dates: start: 20070820, end: 20111109
  14. PREDNISOLONE [Concomitant]
     Dosage: 1.75 MG, BID
     Route: 048
     Dates: start: 20080204, end: 20080811
  15. LANSOPRAZOLE [Concomitant]
     Indication: GASTROOESOPHAGEAL REFLUX DISEASE
     Dosage: 15 MG, UID/QD
     Route: 048
     Dates: start: 20100908, end: 20111109

REACTIONS (2)
  - PNEUMONIA [None]
  - CEREBRAL INFARCTION [None]
